FAERS Safety Report 19844045 (Version 2)
Quarter: 2022Q1

REPORT INFORMATION
  Report Type: Report from Study
  Country: US (occurrence: US)
  Receive Date: 20210917
  Receipt Date: 20220114
  Transmission Date: 20220423
  Serious: No
  Sender: FDA-Public Use
  Company Number: US-REGENERON PHARMACEUTICALS, INC.-2021-82226

PATIENT
  Age: 74 Year
  Sex: Male

DRUGS (1)
  1. CASIRIVIMAB\IMDEVIMAB [Suspect]
     Active Substance: CASIRIVIMAB\IMDEVIMAB
     Indication: COVID-19 treatment
     Dosage: 1200 MG OF CARISIVIMAB OR IMDEVIMAB
     Route: 042
     Dates: start: 20210901, end: 20210901

REACTIONS (2)
  - Single component of a two-component product administered [Unknown]
  - Product label issue [Unknown]

NARRATIVE: CASE EVENT DATE: 20210901
